FAERS Safety Report 6870134-0 (Version None)
Quarter: 2010Q3

REPORT INFORMATION
  Report Type: 
  Country: None (occurrence: None)
  Receive Date: 20100721
  Receipt Date: 20100714
  Transmission Date: 20110219
  Serious: Yes (Hospitalization)
  Sender: FDA-Public Use
  Company Number: 015485

PATIENT
  Sex: Female
  Weight: 77 kg

DRUGS (4)
  1. CERTOLIZUMAB PEGOL (CERTOLIZUMAB PEGOL) [Suspect]
     Indication: CROHN'S DISEASE
     Dosage: 400 MG 1X/2 WEEKS SUBCUTANEOUS, (400 MG 1X/4 WEEKS SUBCUTANEOUS)
     Route: 058
     Dates: end: 20100419
  2. PENTASA [Concomitant]
  3. EMCONCOR [Concomitant]
  4. BUSCOPAN [Concomitant]

REACTIONS (4)
  - ABDOMINAL WALL ABSCESS [None]
  - GASTROINTESTINAL FISTULA [None]
  - ILEITIS [None]
  - PERITONITIS [None]
